FAERS Safety Report 8282890-8 (Version None)
Quarter: 2012Q2

REPORT INFORMATION
  Report Type: 
  Country: None (occurrence: None)
  Receive Date: 20120413
  Receipt Date: 20120330
  Transmission Date: 20120825
  Serious: Yes (Hospitalization)
  Sender: FDA-Public Use
  Company Number: NL-ROCHE-1037132

PATIENT
  Sex: Male
  Weight: 78 kg

DRUGS (5)
  1. ACETYLSALICYLIC ACID SRT [Concomitant]
  2. LANTUS [Concomitant]
  3. PERINDOPRIL ERBUMINE [Concomitant]
     Dates: start: 20110211
  4. GLICLAZIDE [Concomitant]
  5. RANIBIZUMAB [Suspect]
     Indication: DIABETIC RETINAL OEDEMA
     Dosage: LAST DOSE PRIOR TO SAE: 19/JAN/2012
     Route: 065
     Dates: start: 20110127, end: 20120119

REACTIONS (2)
  - CEREBROVASCULAR ACCIDENT [None]
  - ATRIOVENTRICULAR BLOCK [None]
